FAERS Safety Report 20255495 (Version 1)
Quarter: 2021Q4

REPORT INFORMATION
  Report Type: Spontaneous
  Country: US (occurrence: US)
  Receive Date: 20211230
  Receipt Date: 20211230
  Transmission Date: 20220303
  Serious: Yes (Other)
  Sender: FDA-Public Use
  Company Number: US-LUPIN PHARMACEUTICALS INC.-2021-26218

PATIENT
  Age: 36 Year
  Sex: Male

DRUGS (4)
  1. IMATINIB MESYLATE [Suspect]
     Active Substance: IMATINIB MESYLATE
     Indication: Chronic eosinophilic leukaemia
     Dosage: 200 MILLIGRAM, QD
     Route: 065
  2. IMATINIB MESYLATE [Suspect]
     Active Substance: IMATINIB MESYLATE
     Dosage: UNK, (DOSE REDUCED BY BY 50%)
     Route: 065
  3. HYDROXYUREA [Concomitant]
     Active Substance: HYDROXYUREA
     Indication: Eosinophilia
     Dosage: 500 MILLIGRAM, QD
     Route: 065
  4. DASATINIB [Concomitant]
     Active Substance: DASATINIB
     Indication: Chronic eosinophilic leukaemia
     Dosage: 140 MILLIGRAM, QD
     Route: 065

REACTIONS (3)
  - Drug resistance [Unknown]
  - Arthralgia [Unknown]
  - Dermatitis [Unknown]
